FAERS Safety Report 18059887 (Version 1)
Quarter: 2020Q3

REPORT INFORMATION
  Report Type: Spontaneous
  Country: US (occurrence: US)
  Receive Date: 20200723
  Receipt Date: 20200723
  Transmission Date: 20201103
  Serious: Yes (Other)
  Sender: FDA-Public Use
  Company Number: None

PATIENT
  Age: 62 Year
  Sex: Female
  Weight: 82.8 kg

DRUGS (2)
  1. FECAL MICROBIOTA TRANSPLANTATION (FMT) [Suspect]
     Active Substance: FECAL MICROBIOTA
     Indication: CLOSTRIDIUM DIFFICILE COLITIS
     Dosage: ?          OTHER FREQUENCY:ONCE;?
     Route: 054
  2. FMT [Concomitant]
     Dates: start: 20200716, end: 20200716

REACTIONS (2)
  - Probiotic therapy [None]
  - Gastroenteritis Escherichia coli [None]

NARRATIVE: CASE EVENT DATE: 20200721
